FAERS Safety Report 15215497 (Version 1)
Quarter: 2018Q3

REPORT INFORMATION
  Report Type: Spontaneous
  Country: CN (occurrence: CN)
  Receive Date: 20180730
  Receipt Date: 20180730
  Transmission Date: 20181010
  Serious: Yes (Hospitalization)
  Sender: FDA-Public Use
  Company Number: CN-BAYER-2018-142617

PATIENT
  Age: 74 Year
  Sex: Male
  Weight: 56 kg

DRUGS (2)
  1. BAYASPIRIN 100 MG [Suspect]
     Active Substance: ASPIRIN
     Indication: ANTIPLATELET THERAPY
  2. BAYASPIRIN 100 MG [Suspect]
     Active Substance: ASPIRIN
     Indication: COAGULOPATHY
     Dosage: 100 MG, QD
     Route: 048
     Dates: start: 20180416, end: 20180619

REACTIONS (1)
  - Duodenal ulcer [Recovering/Resolving]

NARRATIVE: CASE EVENT DATE: 20180617
